FAERS Safety Report 23837570 (Version 1)
Quarter: 2024Q2

REPORT INFORMATION
  Report Type: Spontaneous
  Country: BR (occurrence: BR)
  Receive Date: 20240509
  Receipt Date: 20240509
  Transmission Date: 20240716
  Serious: Yes (Other)
  Sender: FDA-Public Use
  Company Number: BR-TAKEDA-2024TUS043984

PATIENT
  Age: 46 Year
  Sex: Male

DRUGS (1)
  1. DEXILANT [Suspect]
     Active Substance: DEXLANSOPRAZOLE
     Indication: Gastritis
     Dosage: 60 MILLIGRAM, QD
     Route: 048
     Dates: start: 20240429, end: 20240502

REACTIONS (9)
  - Diarrhoea haemorrhagic [Recovered/Resolved]
  - Off label use [Unknown]
  - Condition aggravated [Unknown]
  - Product prescribing error [Unknown]
  - Tachycardia [Recovered/Resolved]
  - Anxiety [Unknown]
  - Dry mouth [Recovered/Resolved]
  - Nausea [Recovered/Resolved]
  - Abdominal pain upper [Recovered/Resolved]

NARRATIVE: CASE EVENT DATE: 20240429
